FAERS Safety Report 23704893 (Version 1)
Quarter: 2024Q2

REPORT INFORMATION
  Report Type: Spontaneous
  Country: US (occurrence: US)
  Receive Date: 20240404
  Receipt Date: 20240404
  Transmission Date: 20240716
  Serious: Yes (Other)
  Sender: FDA-Public Use
  Company Number: US-PIRAMAL CRITICAL CARE LIMITED-2024-PPL-000242

PATIENT

DRUGS (4)
  1. GABLOFEN [Suspect]
     Active Substance: BACLOFEN
     Indication: Muscle spasticity
     Dosage: UNKNOWN
     Route: 037
  2. GABLOFEN [Suspect]
     Active Substance: BACLOFEN
     Dosage: 500 MCG/ML AT 250 MCG/DAY WITH PTM AT 50 MCG UP TO 4 BOLUSES PER DAY
     Route: 037
  3. LIORESAL [Concomitant]
     Active Substance: BACLOFEN
     Indication: Product used for unknown indication
     Dosage: UNKNOWN
  4. LIORESAL [Concomitant]
     Active Substance: BACLOFEN
     Dosage: 2000 MCG/ML AT A RATE OF 250 MCG/ML
     Route: 037
     Dates: start: 201206

REACTIONS (6)
  - Underdose [Recovered/Resolved]
  - Drug ineffective [Recovered/Resolved]
  - Withdrawal syndrome [Recovered/Resolved]
  - Muscle spasticity [Recovered/Resolved]
  - Tachycardia [Recovered/Resolved]
  - Muscle rigidity [Recovered/Resolved]
